FAERS Safety Report 24573615 (Version 1)
Quarter: 2024Q4

REPORT INFORMATION
  Report Type: Spontaneous
  Country: IT (occurrence: IT)
  Receive Date: 20241103
  Receipt Date: 20241103
  Transmission Date: 20250115
  Serious: Yes (Death, Other)
  Sender: SANDOZ
  Company Number: IT-AMGEN-ITASP2024208395

PATIENT
  Age: 69 Year
  Sex: Male

DRUGS (9)
  1. FLUOROURACIL [Suspect]
     Active Substance: FLUOROURACIL
     Dosage: 2400 MILLIGRAM/SQ. METER, OVER 46 HOURS
     Route: 042
     Dates: end: 202206
  2. FLUOROURACIL [Suspect]
     Active Substance: FLUOROURACIL
     Indication: Colorectal cancer metastatic
     Dosage: 400 MILLIGRAM/SQ. METER, IV BOLUS
     Route: 042
     Dates: start: 202112
  3. FILGRASTIM [Suspect]
     Active Substance: FILGRASTIM
     Indication: Prophylaxis
     Dosage: UNK
     Route: 065
     Dates: start: 2021
  4. FILGRASTIM [Suspect]
     Active Substance: FILGRASTIM
     Indication: Neutropenia
  5. LEUCOVORIN [Suspect]
     Active Substance: LEUCOVORIN\LEUCOVORIN CALCIUM
     Indication: Colorectal cancer metastatic
     Dosage: 400 MILLIGRAM/SQ. METER, OVER 120 MINUTES
     Route: 042
     Dates: start: 202112, end: 202206
  6. OXALIPLATIN [Suspect]
     Active Substance: OXALIPLATIN
     Indication: Colorectal cancer metastatic
     Dosage: 85 MILLIGRAM/SQ. METER, OVER 90 MINUTES
     Route: 042
     Dates: start: 202112
  7. OXALIPLATIN [Suspect]
     Active Substance: OXALIPLATIN
     Dosage: UNK, DOSE INCREASED TO 60%
     Route: 042
     Dates: start: 202112, end: 202206
  8. PANITUMUMAB [Suspect]
     Active Substance: PANITUMUMAB
     Indication: Colorectal cancer metastatic
     Dosage: 5 MILLIGRAM/KILOGRAM, Q2WK, OVER 1 HOUR, 12 CYCLES
     Route: 042
     Dates: start: 202112, end: 202206
  9. FENTANYL [Concomitant]
     Active Substance: FENTANYL
     Indication: Prophylaxis
     Dosage: UNK
     Route: 062

REACTIONS (4)
  - Death [Fatal]
  - Colorectal cancer metastatic [Unknown]
  - Neutropenia [Unknown]
  - Dermatitis acneiform [Unknown]

NARRATIVE: CASE EVENT DATE: 20220101
